FAERS Safety Report 4792120-7 (Version None)
Quarter: 2005Q4

REPORT INFORMATION
  Report Type: 
  Country: None (occurrence: None)
  Receive Date: 20051006
  Receipt Date: 20050922
  Transmission Date: 20060501
  Serious: Yes (Other)
  Sender: FDA-Public Use
  Company Number: C-05-0044

PATIENT
  Age: 78 Year
  Sex: Female
  Weight: 54.4316 kg

DRUGS (4)
  1. MEGESTROL ACETATE [Suspect]
     Indication: ANOREXIA
     Dosage: TWO (2) TSP ORALLY PER DAY
     Dates: start: 20050916
  2. MEGESTROL ACETATE [Suspect]
     Indication: WEIGHT DECREASED
     Dosage: TWO (2) TSP ORALLY PER DAY
     Dates: start: 20050916
  3. REMERON [Concomitant]
  4. PRILOSEC [Concomitant]

REACTIONS (3)
  - DYSGEUSIA [None]
  - PHARMACEUTICAL PRODUCT COMPLAINT [None]
  - PHARYNGOLARYNGEAL PAIN [None]
